FAERS Safety Report 5322101-6 (Version None)
Quarter: 2007Q2

REPORT INFORMATION
  Report Type: 
  Country: None (occurrence: None)
  Receive Date: 20070511
  Receipt Date: 20070507
  Transmission Date: 20071010
  Serious: Yes (Other)
  Sender: FDA-Public Use
  Company Number: HQWYE068908MAY07

PATIENT
  Age: 58 Year
  Sex: Female

DRUGS (3)
  1. ADVIL [Suspect]
     Indication: BACK PAIN
     Dosage: UNKNOWN
     Route: 048
     Dates: start: 20061125, end: 20061204
  2. XALATAN [Suspect]
     Dosage: UNKNOWN
     Route: 065
  3. NAPROXEN [Suspect]
     Dosage: UNKNOWN
     Route: 065

REACTIONS (3)
  - ASTHMA [None]
  - COLLAPSE OF LUNG [None]
  - HEPATOMEGALY [None]
